FAERS Safety Report 9244053 (Version 1)
Quarter: 2013Q1

REPORT INFORMATION
  Report Type: Spontaneous
  Country: US (occurrence: None)
  Receive Date: 20121123
  Receipt Date: 20121123
  Transmission Date: 20140127
  Serious: No
  Sender: FDA-Public Use
  Company Number: 357890

PATIENT
  Age: 62 Year
  Sex: Male
  Weight: 131.1 kg

DRUGS (15)
  1. VICTOZA (LIRAGLUTIDE) SOLUTION FOR INJECTION, 6MG/ML [Suspect]
     Indication: TYPE 2 DIABETES MELLITUS
     Route: 058
     Dates: start: 20110609, end: 20120807
  2. PROVENTIL (SALBUTAMOL [Concomitant]
  3. TESSALON (BENZONATATE) [Concomitant]
  4. CELEXA (CITALOPRAM HYDROBROMIDE) [Concomitant]
  5. DIABETA (GLIBENCLAMIDE) [Concomitant]
  6. NORCO (HYDROCODONE BITARTRATE, PARACETAMOL) [Concomitant]
  7. SYNTHROID (LEVOTHYROXINE SODIUM) [Concomitant]
  8. LISINOPRIL (LISINOPRIL) [Concomitant]
  9. TRAMADOL (TRAMADOL) [Concomitant]
  10. CALCIUM (CALCIUM) [Concomitant]
  11. ASA (ACETYLSALICYLIC ACID) [Concomitant]
  12. TRAZODONE (TRAZODONE) [Concomitant]
  13. PRILOSEC [Concomitant]
  14. CLARITIN (GLICLAZIDE [Concomitant]
  15. IBUPROFEN (IBUPROFEN) [Concomitant]

REACTIONS (1)
  - Pancreatitis acute [None]
